FAERS Safety Report 6865820-2 (Version None)
Quarter: 2010Q3

REPORT INFORMATION
  Report Type: 
  Country: None (occurrence: None)
  Receive Date: 20100720
  Receipt Date: 20100712
  Transmission Date: 20110219
  Serious: Yes (Life-Threatening, Hospitalization)
  Sender: FDA-Public Use
  Company Number: 2009JP003949

PATIENT
  Age: 31 Year
  Sex: Male
  Weight: 70 kg

DRUGS (9)
  1. PROGRAF [Suspect]
     Indication: RENAL TRANSPLANT
     Dosage: 4 MG/D, 2/DMG
     Dates: start: 20041101, end: 20091127
  2. CELLCEPT [Concomitant]
  3. MEDROL [Concomitant]
  4. METHYLPREDNISOLONE [Concomitant]
  5. PREDNISOLONE [Concomitant]
  6. AMLODIIN (AMLODIPINE BESILATE) [Concomitant]
  7. LOSARTAN POTASSIUM [Concomitant]
  8. PERSANTIN [Concomitant]
  9. DILTIAZEM HYDROCHLORIDE [Concomitant]

REACTIONS (10)
  - ALTERED STATE OF CONSCIOUSNESS [None]
  - BLOOD CHOLESTEROL INCREASED [None]
  - DECREASED APPETITE [None]
  - DRUG TOXICITY [None]
  - EPSTEIN-BARR VIRUS ASSOCIATED LYMPHOPROLIFERATIVE DISORDER [None]
  - FOCAL SEGMENTAL GLOMERULOSCLEROSIS [None]
  - LYMPHOMA [None]
  - NEPHROTIC SYNDROME [None]
  - SOMNOLENCE [None]
  - WEIGHT INCREASED [None]
